FAERS Safety Report 5975749-X (Version None)
Quarter: 2008Q4

REPORT INFORMATION
  Report Type: 
  Country: None (occurrence: None)
  Receive Date: 20081202
  Receipt Date: 20081121
  Transmission Date: 20090506
  Serious: Yes (Disabling)
  Sender: FDA-Public Use
  Company Number: PR-MERCK-0805USA02805

PATIENT
  Age: 57 Year
  Sex: Male

DRUGS (1)
  1. FOSAMAX [Suspect]
     Route: 048
     Dates: start: 20050908, end: 20080501

REACTIONS (21)
  - ANGINA PECTORIS [None]
  - ANXIETY [None]
  - BONE DISORDER [None]
  - CONTRAST MEDIA ALLERGY [None]
  - COUGH [None]
  - DEPRESSIVE SYMPTOM [None]
  - DRUG HYPERSENSITIVITY [None]
  - DRUG INEFFECTIVE [None]
  - EYE PAIN [None]
  - HAEMORRHAGE [None]
  - HYPERLIPIDAEMIA [None]
  - INFECTION [None]
  - LOOSE TOOTH [None]
  - OSTEONECROSIS [None]
  - PEMPHIGUS [None]
  - SCHIZOAFFECTIVE DISORDER [None]
  - STOMATITIS [None]
  - STRESS URINARY INCONTINENCE [None]
  - SWELLING [None]
  - TINEA INFECTION [None]
  - URINARY TRACT INFECTION [None]
